FAERS Safety Report 9551730 (Version 1)
Quarter: 2013Q3

REPORT INFORMATION
  Report Type: Spontaneous
  Country: US (occurrence: None)
  Receive Date: 20130923
  Receipt Date: 20130923
  Transmission Date: 20140515
  Serious: Yes (Hospitalization)
  Sender: FDA-Public Use
  Company Number: None

PATIENT
  Age: 40 Year
  Sex: Female
  Weight: 49 kg

DRUGS (2)
  1. OPANA [Suspect]
  2. CLONAZEPAM [Concomitant]

REACTIONS (4)
  - Urinary tract infection [None]
  - Blood culture positive [None]
  - Staphylococcus test positive [None]
  - Drug abuse [None]
